FAERS Safety Report 22540218 (Version 4)
Quarter: 2023Q4

REPORT INFORMATION
  Report Type: Spontaneous
  Country: US (occurrence: US)
  Receive Date: 20230609
  Receipt Date: 20231220
  Transmission Date: 20240110
  Serious: Yes (Other)
  Sender: FDA-Public Use
  Company Number: US-SA-SAC20230609000389

PATIENT
  Age: 58 Year
  Sex: Female

DRUGS (1)
  1. DUPIXENT [Suspect]
     Active Substance: DUPILUMAB
     Indication: Dermatitis atopic
     Dosage: 300 MG, QOW
     Route: 058
     Dates: start: 202303

REACTIONS (6)
  - Cataract [Unknown]
  - Dacryostenosis acquired [Unknown]
  - Lacrimation increased [Not Recovered/Not Resolved]
  - Inflammation [Unknown]
  - Eye allergy [Unknown]
  - Sinus disorder [Unknown]

NARRATIVE: CASE EVENT DATE: 20230101
